FAERS Safety Report 5840902-2 (Version None)
Quarter: 2008Q3

REPORT INFORMATION
  Report Type: 
  Country: None (occurrence: None)
  Receive Date: 20080730
  Receipt Date: 20080425
  Transmission Date: 20090109
  Serious: Yes (Other)
  Sender: FDA-Public Use
  Company Number: PHEH2008US03896

PATIENT
  Age: 71 Year
  Sex: Female
  Weight: 86.2 kg

DRUGS (2)
  1. TEKTURNA [Suspect]
     Indication: HYPERTENSION
     Dosage: 150 MG, QD. ORAL; 300 MG, QD, ORAL
     Route: 048
     Dates: end: 20080401
  2. TEKTURNA [Suspect]
     Indication: HYPERTENSION
     Dosage: 150 MG, QD. ORAL; 300 MG, QD, ORAL
     Route: 048
     Dates: start: 20080401

REACTIONS (6)
  - BLOOD PRESSURE DIASTOLIC INCREASED [None]
  - BLOOD PRESSURE FLUCTUATION [None]
  - BLOOD PRESSURE SYSTOLIC INCREASED [None]
  - DRUG INEFFECTIVE [None]
  - HYPERTENSION [None]
  - THERAPY RESPONDER [None]
